FAERS Safety Report 12439442 (Version 1)
Quarter: 2016Q2

REPORT INFORMATION
  Report Type: Spontaneous
  Country: JP (occurrence: JP)
  Receive Date: 20160606
  Receipt Date: 20160606
  Transmission Date: 20160815
  Serious: Yes (Hospitalization)
  Sender: FDA-Public Use
  Company Number: JP-EDISONTHERAPEUTICS-2016-JP-000003

PATIENT
  Age: 33 Year
  Sex: Female

DRUGS (1)
  1. METHERGINE [Suspect]
     Active Substance: METHYLERGONOVINE MALEATE
     Route: 048

REACTIONS (4)
  - Arteriospasm coronary [Unknown]
  - Chest discomfort [Unknown]
  - Myocardial infarction [Unknown]
  - Oropharyngeal discomfort [Unknown]
